FAERS Safety Report 9026724 (Version 1)
Quarter: 2013Q1

REPORT INFORMATION
  Report Type: Spontaneous
  Country: GB (occurrence: None)
  Receive Date: 20130107
  Receipt Date: 20130107
  Transmission Date: 20140127
  Serious: Yes (Disabling)
  Sender: FDA-Public Use
  Company Number: GER/UKI/13/0027285

PATIENT
  Sex: Female

DRUGS (6)
  1. AMLODIPINE BESILATE [Suspect]
     Indication: HYPERTENSION
     Route: 048
     Dates: start: 20121204, end: 20121213
  2. AZATHIOPRINE (AZATHIOPRINE) [Concomitant]
  3. CALCICHEW [Concomitant]
  4. LIPTOR (ATORVASTATIN) [Concomitant]
  5. OMEPRAZOLE (OMEPRAZOLE) [Concomitant]
  6. SYMBICORT (BUDESONIDE W/FORMOTEROL FUMARATE) [Concomitant]

REACTIONS (2)
  - Confusional state [None]
  - Memory impairment [None]
